FAERS Safety Report 9366110 (Version 1)
Quarter: 2013Q2

REPORT INFORMATION
  Report Type: Spontaneous
  Country: FR (occurrence: None)
  Receive Date: 20130619
  Receipt Date: 20130619
  Transmission Date: 20140414
  Serious: Yes (Hospitalization)
  Sender: FDA-Public Use
  Company Number: ENTC2013-0220

PATIENT
  Age: 51 Year
  Sex: Male

DRUGS (12)
  1. STALEVO [Suspect]
     Indication: PARKINSON^S DISEASE
     Dosage: STRENGTH 150/37.5/200 MG; 07:00 AM, 10:00 AM. 01:00 PM, 04:00 PM AND 07:00 PM (1 DOSAGE FORM, 5 IN 1 D) ORAL
     Route: 048
  2. SINEMET [Suspect]
     Indication: PARKINSON^S DISEASE
     Dosage: STRENGTH 200/50 MG; AT 10:00 PM (1 DOSAGE FORM, 1 IN 1 D) ORAL
     Route: 048
  3. MANTADIX [Suspect]
     Indication: PARKINSON^S DISEASE
     Dosage: 200 MG (100 MG, 2 IN 1 D) ORAL
     Route: 048
  4. MODOPAR (LEVODOPA [Suspect]
     Indication: PARKINSON^S DISEASE
     Dosage: 25/100 MG PO ORAL ?LONG TERM TREATMENT
     Route: 048
  5. NEUPRO [Suspect]
     Indication: PARKINSON^S DISEASE
     Route: 062
     Dates: start: 20130304
  6. TETRAZEPAM [Concomitant]
  7. DEPAKOTE [Concomitant]
  8. ZOLPIDEM ARROW [Concomitant]
  9. LYSANXIA [Concomitant]
  10. INEXIUM [Concomitant]
  11. TAMULOSINE ACTAVIS [Concomitant]
  12. AZILECT [Suspect]
     Route: 048

REACTIONS (2)
  - Dystonia [None]
  - Torticollis [None]
